FAERS Safety Report 5200892-2 (Version None)
Quarter: 2007Q1

REPORT INFORMATION
  Report Type: 
  Country: None (occurrence: None)
  Receive Date: 20070103
  Receipt Date: 20061218
  Transmission Date: 20070707
  Serious: Yes (Disabling, Other)
  Sender: FDA-Public Use
  Company Number: GXKR2006CH08210

PATIENT
  Age: 57 Year
  Sex: Male

DRUGS (4)
  1. FOLINIC ACID (NGX) (FOLINIC ACID) UNKNOWN [Suspect]
     Indication: METASTASES TO LUNG
     Dosage: 20 MG/MA, A2 QW FOR 4 WEEKS EVERY 6 WEEKS, INTRAVENOUS
     Route: 042
  2. FLUOROURACIL [Suspect]
     Indication: METASTASES TO LUNG
     Dosage: 500 MG/MA, A2 QW FOR WEEKS EVERY 6 WEEKS, INTRAVENOUS
     Route: 042
  3. IRINOTECAN (NGX) (IRINOTECAN) UNKNOWN [Suspect]
     Indication: METASTASES TO LUNG
     Dosage: 125 MG/M2 QW FOR 4 WEEKS EVERY 6 WEEKS, INTRAVENOUS
     Route: 042
  4. BEVACIZUMAB (BEVACIZUMAB) [Suspect]
     Indication: METASTASES TO LUNG
     Dosage: 5 MG/KG, BIW

REACTIONS (5)
  - AORTIC THROMBOSIS [None]
  - EMBOLISM [None]
  - NECROSIS [None]
  - PERIPHERAL ISCHAEMIA [None]
  - TOE AMPUTATION [None]
